FAERS Safety Report 5803569-5 (Version None)
Quarter: 2008Q3

REPORT INFORMATION
  Report Type: 
  Country: None (occurrence: None)
  Receive Date: 20080703
  Receipt Date: 20080623
  Transmission Date: 20090109
  Serious: Yes (Hospitalization)
  Sender: FDA-Public Use
  Company Number: 2008BI009048

PATIENT
  Age: 23 Year
  Sex: Male

DRUGS (9)
  1. TYSABRI [Suspect]
     Indication: RELAPSING-REMITTING MULTIPLE SCLEROSIS
     Dosage: 300 MG;QM;IV
     Route: 042
     Dates: start: 20060901
  2. METHYLPREDNISOLONE [Concomitant]
  3. AMLODIPINE [Concomitant]
  4. CIPRAMIL [Concomitant]
  5. LISINOPRIL [Concomitant]
  6. VERAHEXAL [Concomitant]
  7. VERAHEXAL [Concomitant]
  8. AMANTADINE HCL [Concomitant]
  9. CIPRALEX [Concomitant]

REACTIONS (2)
  - MULTIPLE SCLEROSIS RELAPSE [None]
  - OSTEONECROSIS [None]
